FAERS Safety Report 18798402 (Version 7)
Quarter: 2021Q1

REPORT INFORMATION
  Report Type: Report from Study
  Country: US (occurrence: US)
  Receive Date: 20210128
  Receipt Date: 20210325
  Transmission Date: 20210419
  Serious: Yes (Life-Threatening, Hospitalization, Other)
  Sender: FDA-Public Use
  Company Number: NVSC2021US016711

PATIENT
  Age: 56 Year
  Sex: Female

DRUGS (8)
  1. COSENTYX [Suspect]
     Active Substance: SECUKINUMAB
     Dosage: 300 MG/ML EVERY 4 WEEK
     Route: 058
     Dates: start: 202007
  2. COSENTYX [Suspect]
     Active Substance: SECUKINUMAB
     Dosage: 300 MG/ML EVERY 4 WEEK
     Route: 058
     Dates: start: 202006
  3. COSENTYX [Suspect]
     Active Substance: SECUKINUMAB
     Indication: PSORIASIS
     Dosage: 300 MG/ML EVERY 4 WEEK
     Route: 058
     Dates: start: 202004
  4. IBUPROFEN. [Concomitant]
     Active Substance: IBUPROFEN
     Indication: PRODUCT USED FOR UNKNOWN INDICATION
     Dosage: UNK
     Route: 065
  5. ACETYLSALICYLIC ACID [Concomitant]
     Active Substance: ASPIRIN
     Indication: PAIN
     Dosage: 81 MG, QD
     Route: 048
     Dates: start: 20191013
  6. COSENTYX [Suspect]
     Active Substance: SECUKINUMAB
     Indication: PSORIATIC ARTHROPATHY
     Dosage: 300 MG/ML EVERY 4 WEEK
     Route: 058
     Dates: start: 202002
  7. COSENTYX [Suspect]
     Active Substance: SECUKINUMAB
     Dosage: 300 MG/ML EVERY 4 WEEK
     Route: 058
     Dates: start: 202005
  8. FLUOXETIN [Concomitant]
     Active Substance: FLUOXETINE HYDROCHLORIDE
     Indication: PRODUCT USED FOR UNKNOWN INDICATION
     Dosage: 20 MG, QD
     Route: 048
     Dates: start: 20191013

REACTIONS (36)
  - Ill-defined disorder [Unknown]
  - Dry skin [Unknown]
  - Psoriatic arthropathy [Unknown]
  - Obesity [Unknown]
  - Drug hypersensitivity [Unknown]
  - Non-pitting oedema [Unknown]
  - Tachycardia [Recovered/Resolved]
  - Fear of death [Unknown]
  - Feeling abnormal [Unknown]
  - Viral infection [Unknown]
  - Blood loss anaemia [Unknown]
  - Sepsis [Unknown]
  - Psoriasis [Not Recovered/Not Resolved]
  - Dyspnoea [Unknown]
  - Musculoskeletal stiffness [Unknown]
  - Depression [Unknown]
  - Cellulitis [Recovering/Resolving]
  - Fatigue [Unknown]
  - Oesophageal obstruction [Unknown]
  - Leukocytosis [Recovered/Resolved]
  - Anxiety [Unknown]
  - Near death experience [Unknown]
  - Lymphoedema [Not Recovered/Not Resolved]
  - Neoplasm malignant [Unknown]
  - Crying [Unknown]
  - Malaise [Unknown]
  - Skin exfoliation [Unknown]
  - Oesophageal candidiasis [Unknown]
  - Nausea [Unknown]
  - Product dose omission issue [Unknown]
  - Hypokalaemia [Recovered/Resolved]
  - Chronic respiratory failure [Unknown]
  - Gastric ulcer haemorrhage [Unknown]
  - Pain [Unknown]
  - Gait disturbance [Unknown]
  - Sleep deficit [Unknown]

NARRATIVE: CASE EVENT DATE: 202008
